FAERS Safety Report 4416510-7 (Version None)
Quarter: 2004Q3

REPORT INFORMATION
  Report Type: 
  Country: None (occurrence: None)
  Receive Date: 20040805
  Receipt Date: 20040709
  Transmission Date: 20050211
  Serious: Yes (Hospitalization)
  Sender: FDA-Public Use
  Company Number: PHFR2004GB02777

PATIENT
  Age: 28 Year
  Sex: Female

DRUGS (6)
  1. CLOZARIL [Suspect]
     Indication: MEDICATION ERROR
     Dosage: 1400 MG OVERDOSE
     Route: 048
  2. QUETIAPINE [Suspect]
  3. ZOPICLONE [Suspect]
  4. THYROXIN [Concomitant]
     Dosage: 50 UG/DAY
     Route: 048
  5. QUETIAPINE [Concomitant]
     Dosage: 200MG/DAY
     Route: 048
  6. VENTOLIN                           /00139501/ [Concomitant]
     Dosage: 2 PUFFFS PRN

REACTIONS (8)
  - ACCIDENTAL EXPOSURE [None]
  - AGITATION [None]
  - ALANINE AMINOTRANSFERASE INCREASED [None]
  - DYSTONIA [None]
  - HALLUCINATION, AUDITORY [None]
  - INTENTIONAL OVERDOSE [None]
  - SELF-INJURIOUS IDEATION [None]
  - SUICIDAL IDEATION [None]
